FAERS Safety Report 24029469 (Version 1)
Quarter: 2024Q2

REPORT INFORMATION
  Report Type: Spontaneous
  Country: US (occurrence: US)
  Receive Date: 20240628
  Receipt Date: 20240628
  Transmission Date: 20240716
  Serious: No
  Sender: FDA-Public Use
  Company Number: US-BAUSCH-BL-2024-009812

PATIENT
  Age: 80 Year
  Sex: Female

DRUGS (1)
  1. TRETINOIN [Suspect]
     Active Substance: TRETINOIN
     Indication: Product used for unknown indication
     Dosage: USING FOR 11 WEEKS
     Route: 065
     Dates: start: 2024, end: 2024

REACTIONS (2)
  - Diarrhoea [Not Recovered/Not Resolved]
  - Dry skin [Recovered/Resolved]

NARRATIVE: CASE EVENT DATE: 20240101
